FAERS Safety Report 9828633 (Version 1)
Quarter: 2014Q1

REPORT INFORMATION
  Report Type: Report from Study
  Country: US (occurrence: US)
  Receive Date: 20140117
  Receipt Date: 20140117
  Transmission Date: 20141002
  Serious: Yes (Hospitalization, Other)
  Sender: FDA-Public Use
  Company Number: US-US-EMD SERONO, INC.-7262191

PATIENT
  Sex: Female
  Weight: 65 kg

DRUGS (9)
  1. REBIF [Suspect]
     Indication: MULTIPLE SCLEROSIS
     Route: 058
     Dates: start: 20061219
  2. SYNTHROID [Concomitant]
     Indication: BASEDOW^S DISEASE
  3. LYRICA [Concomitant]
     Indication: MULTIPLE SCLEROSIS
  4. LYRICA [Concomitant]
     Indication: MULTIPLE SCLEROSIS
  5. LYRICA [Concomitant]
     Indication: MULTIPLE SCLEROSIS
  6. BACLOFEN [Concomitant]
     Indication: MULTIPLE SCLEROSIS
  7. BACLOFEN [Concomitant]
     Indication: MULTIPLE SCLEROSIS
  8. BACLOFEN [Concomitant]
     Indication: MULTIPLE SCLEROSIS
  9. ZOLOFT                             /01011401/ [Concomitant]
     Indication: MOOD ALTERED

REACTIONS (5)
  - Type 2 diabetes mellitus [Recovering/Resolving]
  - Optic neuritis [Recovering/Resolving]
  - Weight decreased [Unknown]
  - Headache [Recovering/Resolving]
  - Injection site bruising [Not Recovered/Not Resolved]
